FAERS Safety Report 5988994-4 (Version None)
Quarter: 2008Q4

REPORT INFORMATION
  Report Type: 
  Country: None (occurrence: None)
  Receive Date: 20081210
  Receipt Date: 20081205
  Transmission Date: 20090506
  Serious: Yes (Other)
  Sender: FDA-Public Use
  Company Number: A0759670A

PATIENT
  Age: 50 Year
  Sex: Female
  Weight: 135.5 kg

DRUGS (4)
  1. AVANDIA [Suspect]
     Dosage: 8MG TWICE PER DAY
     Route: 065
     Dates: start: 19990101, end: 20040101
  2. GLUCOPHAGE [Concomitant]
     Dates: start: 20000101
  3. METFORMIN HCL [Concomitant]
     Dates: start: 20000101
  4. DIABETA [Concomitant]
     Dates: start: 20000101

REACTIONS (1)
  - MYOCARDIAL INFARCTION [None]
